FAERS Safety Report 25916985 (Version 1)
Quarter: 2025Q4

REPORT INFORMATION
  Report Type: Spontaneous
  Country: TR (occurrence: TR)
  Receive Date: 20251014
  Receipt Date: 20251014
  Transmission Date: 20260117
  Serious: Yes (Other)
  Sender: AMNEAL
  Company Number: TR-AMNEAL PHARMACEUTICALS-2025-AMRX-03947

PATIENT
  Age: 34 Year
  Sex: Female

DRUGS (4)
  1. ARIPIPRAZOLE [Suspect]
     Active Substance: ARIPIPRAZOLE
     Indication: Obsessive-compulsive disorder
     Dosage: 10 MILLIGRAM, 1 /DAY
     Route: 065
  2. ARIPIPRAZOLE [Suspect]
     Active Substance: ARIPIPRAZOLE
     Indication: Major depression
     Dosage: 10 MILLIGRAM, 1 /DAY
     Route: 065
  3. FLUOXETINE [Suspect]
     Active Substance: FLUOXETINE HYDROCHLORIDE
     Indication: Obsessive-compulsive disorder
     Dosage: 80 MILLIGRAM, 1 /DAY
     Route: 065
  4. FLUOXETINE [Suspect]
     Active Substance: FLUOXETINE HYDROCHLORIDE
     Indication: Major depression

REACTIONS (1)
  - Acute myopia [Recovered/Resolved]
